FAERS Safety Report 13261479 (Version 2)
Quarter: 2017Q1

REPORT INFORMATION
  Report Type: Spontaneous
  Country: US (occurrence: US)
  Receive Date: 20170222
  Receipt Date: 20170228
  Transmission Date: 20170428
  Serious: Yes (Death, Hospitalization, Other)
  Sender: FDA-Public Use
  Company Number: US-PFIZER INC-US-WYE-H07661409

PATIENT
  Age: 62 Year
  Sex: Male

DRUGS (4)
  1. BACTRIM [Concomitant]
     Active Substance: SULFAMETHOXAZOLE\TRIMETHOPRIM
     Route: 065
  2. ZOFRAN [Concomitant]
     Active Substance: ONDANSETRON HYDROCHLORIDE
     Route: 065
  3. TORISEL [Suspect]
     Active Substance: TEMSIROLIMUS
     Indication: RENAL CELL CARCINOMA
     Dosage: 25.0 MG, WEEKLY
     Route: 042
     Dates: start: 20081203, end: 20081217
  4. OXYCONTIN [Concomitant]
     Active Substance: OXYCODONE HYDROCHLORIDE
     Route: 065

REACTIONS (8)
  - Myocardial infarction [Unknown]
  - Dyspnoea [Unknown]
  - Pain [Unknown]
  - Pleural effusion [Unknown]
  - Thirst [Unknown]
  - Weight increased [Unknown]
  - Gastrointestinal haemorrhage [Unknown]
  - Renal failure [Fatal]

NARRATIVE: CASE EVENT DATE: 200812
